FAERS Safety Report 6195434-1 (Version None)
Quarter: 2009Q2

REPORT INFORMATION
  Report Type: 
  Country: None (occurrence: None)
  Receive Date: 20090519
  Receipt Date: 20090518
  Transmission Date: 20091009
  Serious: Yes (Other)
  Sender: FDA-Public Use
  Company Number: FR-BRISTOL-MYERS SQUIBB COMPANY-14628499

PATIENT
  Age: 83 Year
  Sex: Male

DRUGS (3)
  1. IRBESARTAN AND HYDROCHLOROTHIAZIDE [Suspect]
     Indication: HYPERTENSION
     Dosage: DOSE REDUCED TO 150MG/DAY TILL 25AUG2008
     Dates: end: 20080825
  2. AMLODIPINE BESYLATE [Suspect]
     Indication: HYPERTENSION
     Dosage: 1 DOSAGE FORM : 1 (UNITS NOT SPECIFIED)
     Dates: end: 20080725
  3. CRESTOR [Concomitant]

REACTIONS (3)
  - BALANCE DISORDER [None]
  - FALL [None]
  - HYPOTENSION [None]
